FAERS Safety Report 8388712 (Version 2)
Quarter: 2013Q3

REPORT INFORMATION
  Report Type: Spontaneous
  Country: US (occurrence: US)
  Receive Date: 20120203
  Receipt Date: 20130709
  Transmission Date: 20140515
  Serious: Yes (Other)
  Sender: FDA-Public Use
  Company Number: US-JNJFOC-20111208808

PATIENT
  Age: 64 Year
  Sex: Male
  Weight: 113.4 kg

DRUGS (18)
  1. REMICADE [Suspect]
     Indication: PSORIATIC ARTHROPATHY
     Route: 042
     Dates: start: 2008
  2. REMICADE [Suspect]
     Indication: PSORIATIC ARTHROPATHY
     Route: 042
     Dates: start: 200902, end: 2011
  3. REMICADE [Suspect]
     Indication: PSORIATIC ARTHROPATHY
     Route: 042
  4. REMICADE [Suspect]
     Indication: PSORIATIC ARTHROPATHY
     Route: 042
     Dates: start: 20090103
  5. REMICADE [Suspect]
     Indication: PSORIASIS
     Route: 042
     Dates: start: 200902, end: 2011
  6. REMICADE [Suspect]
     Indication: PSORIASIS
     Route: 042
  7. REMICADE [Suspect]
     Indication: PSORIASIS
     Route: 042
     Dates: start: 20090103
  8. REMICADE [Suspect]
     Indication: PSORIASIS
     Route: 042
     Dates: start: 2008
  9. METHOTREXATE [Suspect]
     Indication: PSORIASIS
     Route: 048
     Dates: start: 201103
  10. TOPROL XL [Concomitant]
     Indication: BLOOD PRESSURE
     Route: 048
  11. ASPIRIN [Concomitant]
     Dosage: 2 TABLETS ONCE A DAY
     Route: 065
  12. OMEGA 3 FISH OIL [Concomitant]
     Route: 065
  13. FOLIC ACID [Concomitant]
     Dosage: 5 TABLETS DAILY
     Route: 065
  14. CALCIUM CITRATE WITH VITAMIN D [Concomitant]
     Dosage: 5 TABLETS DAILY
     Route: 065
  15. CEFDINIR [Concomitant]
     Dosage: FOR 10 DAYS
     Route: 065
  16. VALSARTAN/HYDROCHLOROTHIAZIDE [Concomitant]
     Dosage: 320-25 MG
     Route: 048
  17. PREDNISONE [Concomitant]
     Dosage: INITIALLY ONE TABLET DAILY, FOLLOWED BY HALF A TABLET DAILY FOR 3 DAYS.
     Route: 065
     Dates: end: 201112
  18. PROTONIX [Concomitant]
     Route: 065

REACTIONS (7)
  - Obstructive airways disorder [Unknown]
  - Asthma [Unknown]
  - Rhinitis allergic [Unknown]
  - Bronchitis bacterial [Recovering/Resolving]
  - Nasopharyngitis [Recovering/Resolving]
  - Ageusia [Unknown]
  - Acute sinusitis [Unknown]
